FAERS Safety Report 24061880 (Version 1)
Quarter: 2024Q3

REPORT INFORMATION
  Report Type: Spontaneous
  Country: US (occurrence: US)
  Receive Date: 20240708
  Receipt Date: 20240708
  Transmission Date: 20241017
  Serious: No
  Sender: BAYER
  Company Number: US-BAYER-2024A095535

PATIENT
  Sex: Female

DRUGS (2)
  1. BETASERON [Suspect]
     Active Substance: INTERFERON BETA-1B
     Route: 058
  2. DEVICE [Suspect]
     Active Substance: DEVICE

REACTIONS (2)
  - Drug dose omission by device [None]
  - Drug delivery system malfunction [None]

NARRATIVE: CASE EVENT DATE: 20240210
